FAERS Safety Report 8854437 (Version 2)
Quarter: 2013Q4

REPORT INFORMATION
  Report Type: Spontaneous
  Country: US (occurrence: US)
  Receive Date: 20121023
  Receipt Date: 20131030
  Transmission Date: 20140711
  Serious: No
  Sender: FDA-Public Use
  Company Number: US-ASTRAZENECA-2012SE79704

PATIENT
  Age: 65 Year
  Sex: Female
  Weight: 83.9 kg

DRUGS (18)
  1. NEXIUM [Suspect]
     Indication: GASTROOESOPHAGEAL REFLUX DISEASE
     Route: 048
     Dates: start: 2005, end: 20131011
  2. LISINOPRIL [Suspect]
     Indication: BLOOD PRESSURE ABNORMAL
     Route: 048
  3. OTC [Suspect]
     Route: 065
  4. PLAVIX [Concomitant]
     Route: 048
  5. VERAPAMIL [Concomitant]
     Indication: BLOOD PRESSURE ABNORMAL
     Route: 048
  6. ADVAIR [Concomitant]
     Indication: EMPHYSEMA
     Dosage: DAILY
     Route: 055
  7. SPIRIVA [Concomitant]
     Indication: EMPHYSEMA
     Dosage: DAILY
  8. WELLBUTRIN [Concomitant]
     Dosage: 150 MGS BID, GENERIC
     Route: 048
  9. METFORMIN [Concomitant]
     Indication: DIABETES MELLITUS
  10. PAXIL [Concomitant]
     Dosage: GENERIC
  11. LIPITOR [Concomitant]
     Indication: BLOOD CHOLESTEROL ABNORMAL
  12. MULTIVITAMINS [Concomitant]
  13. IRON SUPPLEMENT [Concomitant]
     Indication: RED BLOOD CELL COUNT DECREASED
  14. CELEBREX [Concomitant]
     Indication: OSTEOARTHRITIS
  15. ALEXONATE SODIUM [Concomitant]
     Indication: OSTEOPOROSIS
     Dosage: WEEK
  16. PAIN MEDICATION [Concomitant]
     Indication: ARTHRALGIA
  17. LOVENOX [Concomitant]
     Indication: THROMBOSIS
     Dosage: FOR 18 DAYS
  18. MEDICATION FOR OSTEOPOROSIS [Concomitant]
     Indication: OSTEOPOROSIS
     Dosage: WEEKLY

REACTIONS (13)
  - Diabetes mellitus [Not Recovered/Not Resolved]
  - Emphysema [Not Recovered/Not Resolved]
  - Gastrooesophageal reflux disease [Unknown]
  - Abdominal pain upper [Unknown]
  - Dyspnoea [Unknown]
  - Blood cholesterol increased [Not Recovered/Not Resolved]
  - Osteoporosis [Not Recovered/Not Resolved]
  - Osteoarthritis [Not Recovered/Not Resolved]
  - Red blood cell count decreased [Not Recovered/Not Resolved]
  - Arthralgia [Not Recovered/Not Resolved]
  - Intentional drug misuse [Not Recovered/Not Resolved]
  - Drug ineffective [Unknown]
  - Drug dose omission [Unknown]
